FAERS Safety Report 8493371-0 (Version None)
Quarter: 2012Q3

REPORT INFORMATION
  Report Type: 
  Country: None (occurrence: None)
  Receive Date: 20120706
  Receipt Date: 20120704
  Transmission Date: 20120928
  Serious: Yes (Life-Threatening)
  Sender: FDA-Public Use
  Company Number: IT-SANOFI-AVENTIS-2012SA041246

PATIENT
  Age: 40 Year
  Sex: Male

DRUGS (20)
  1. LYRICA [Suspect]
     Dosage: DOSE:14 UNIT(S)
     Route: 048
     Dates: start: 20120523, end: 20120523
  2. DULOXETINE HYDROCHLORIDE [Suspect]
     Dosage: DOSE:56 UNIT(S)
     Route: 048
     Dates: start: 20120523, end: 20120523
  3. VALIUM [Suspect]
     Route: 048
     Dates: start: 20120523, end: 20120523
  4. APIDRA OPTISET [Suspect]
     Route: 058
     Dates: start: 20120523, end: 20120523
  5. DEPAKENE [Suspect]
     Dosage: DOSE:60 UNIT(S)
     Route: 048
     Dates: start: 20120523, end: 20120523
  6. DULOXETINE HYDROCHLORIDE [Suspect]
     Route: 048
  7. DULOXETINE HYDROCHLORIDE [Suspect]
     Dosage: DOSE:56 UNIT(S)
     Route: 048
     Dates: start: 20120523, end: 20120523
  8. APIDRA OPTISET [Suspect]
     Dosage: DOSE REPORTED AS 18IU, 26IU AND 26IU
     Route: 058
  9. OPTISET [Suspect]
     Indication: DEVICE THERAPY
  10. RAMIPRIL [Concomitant]
     Route: 048
  11. APIDRA OPTISET [Suspect]
     Route: 058
     Dates: start: 20120523, end: 20120523
  12. HUMALOG [Suspect]
     Route: 058
     Dates: start: 20120523, end: 20120523
  13. TRAMADOL HCL [Suspect]
     Route: 048
     Dates: start: 20120523, end: 20120523
  14. LYRICA [Suspect]
     Route: 048
  15. APIDRA OPTISET [Suspect]
     Dosage: DOSE REPORTED AS 18IU, 26IU AND 26IU
     Route: 058
  16. OPTISET [Suspect]
     Dates: start: 20120523, end: 20120523
  17. DULOXETINE HYDROCHLORIDE [Suspect]
     Route: 048
  18. LYRICA [Suspect]
     Dosage: DOSE:14 UNIT(S)
     Route: 048
     Dates: start: 20120523, end: 20120523
  19. LYRICA [Suspect]
     Indication: DIABETIC NEUROPATHY
     Route: 048
  20. LANTUS [Concomitant]
     Route: 058

REACTIONS (6)
  - INTENTIONAL OVERDOSE [None]
  - HYPOGLYCAEMIA [None]
  - SUICIDE ATTEMPT [None]
  - SOPOR [None]
  - HYPOTENSION [None]
  - HYPOKINESIA [None]
